FAERS Safety Report 16133677 (Version 1)
Quarter: 2019Q1

REPORT INFORMATION
  Report Type: Report from Study
  Country: IT (occurrence: IT)
  Receive Date: 20190329
  Receipt Date: 20190329
  Transmission Date: 20190418
  Serious: Yes (Other)
  Sender: FDA-Public Use
  Company Number: IT-ACCORD-116487

PATIENT
  Age: 59 Year
  Sex: Female

DRUGS (2)
  1. EPIRUBICINA AHCL [Suspect]
     Active Substance: EPIRUBICIN
     Indication: PRODUCT USED FOR UNKNOWN INDICATION
  2. DOCETAXEL ACCORD HEALTHCARE [Suspect]
     Active Substance: DOCETAXEL
     Indication: PRODUCT USED FOR UNKNOWN INDICATION

REACTIONS (9)
  - Nausea [Unknown]
  - Dry eye [Unknown]
  - Aphthous ulcer [Unknown]
  - Vomiting [Unknown]
  - Dysgeusia [Unknown]
  - Stomatitis [Unknown]
  - Alopecia [Unknown]
  - Neutropenia [Unknown]
  - Asthenia [Unknown]

NARRATIVE: CASE EVENT DATE: 20181013
